FAERS Safety Report 4590315-9 (Version None)
Quarter: 2005Q1

REPORT INFORMATION
  Report Type: 
  Country: None (occurrence: None)
  Receive Date: 20050224
  Receipt Date: 20050216
  Transmission Date: 20050727
  Serious: Yes (Other)
  Sender: FDA-Public Use
  Company Number: PHEH2005US02131

PATIENT
  Age: 54 Year
  Sex: Female

DRUGS (4)
  1. LESCOL [Suspect]
     Indication: HYPERCHOLESTEROLAEMIA
     Dosage: 20 MG, QD
     Dates: start: 20040101, end: 20041201
  2. HYDROCHLOROTHIAZIDE [Concomitant]
     Dosage: 50 MG, QD
  3. SINGULAIR [Concomitant]
  4. DETROL [Concomitant]

REACTIONS (3)
  - DIFFICULTY IN WALKING [None]
  - MUSCLE STRAIN [None]
  - MUSCULAR WEAKNESS [None]
